FAERS Safety Report 16472084 (Version 1)
Quarter: 2019Q2

REPORT INFORMATION
  Report Type: Spontaneous
  Country: US (occurrence: US)
  Receive Date: 20190625
  Receipt Date: 20190625
  Transmission Date: 20190711
  Serious: No
  Sender: FDA-Public Use
  Company Number: US-GLAXOSMITHKLINE-US2019111055

PATIENT
  Sex: Female

DRUGS (1)
  1. ABREVA [Suspect]
     Active Substance: DOCOSANOL
     Indication: ORAL HERPES
     Dosage: UNK

REACTIONS (9)
  - Oral discomfort [Unknown]
  - Alopecia [Unknown]
  - Application site pain [Not Recovered/Not Resolved]
  - Hypersensitivity [Unknown]
  - Condition aggravated [Not Recovered/Not Resolved]
  - Nonspecific reaction [Unknown]
  - Accidental exposure to product [Unknown]
  - Skin burning sensation [Unknown]
  - Oral herpes [Not Recovered/Not Resolved]
